FAERS Safety Report 12287643 (Version 2)
Quarter: 2016Q3

REPORT INFORMATION
  Report Type: Spontaneous
  Country: US (occurrence: US)
  Receive Date: 20160420
  Receipt Date: 20160705
  Transmission Date: 20161109
  Serious: No
  Sender: FDA-Public Use
  Company Number: US-PFIZER INC-2016211101

PATIENT
  Age: 62 Year
  Sex: Female

DRUGS (3)
  1. IBRANCE [Suspect]
     Active Substance: PALBOCICLIB
     Indication: BREAST CANCER
     Dosage: 125 MG, CYCLIC (QD (21 DAYS ON/7 DAYS OFF) )
     Dates: start: 20160331
  2. IBRANCE [Suspect]
     Active Substance: PALBOCICLIB
     Dosage: 100 MG, CYCLIC (100 MG DAILY FOR 21 DAYS THEN 7 DAYS OFF)
     Route: 048
  3. FASLODEX [Concomitant]
     Active Substance: FULVESTRANT
     Dosage: UNK

REACTIONS (4)
  - Nausea [Recovered/Resolved]
  - White blood cell count decreased [Recovered/Resolved]
  - Vomiting [Recovered/Resolved]
  - Skin odour abnormal [Unknown]

NARRATIVE: CASE EVENT DATE: 20160427
